FAERS Safety Report 5288192-6 (Version None)
Quarter: 2007Q2

REPORT INFORMATION
  Report Type: 
  Country: None (occurrence: None)
  Receive Date: 20070402
  Receipt Date: 20070402
  Transmission Date: 20071010
  Serious: Yes (Hospitalization)
  Sender: FDA-Public Use
  Company Number: None

PATIENT
  Sex: Male
  Weight: 89.6 kg

DRUGS (7)
  1. WARFARIN SODIUM [Suspect]
     Indication: ATRIAL FIBRILLATION
     Dosage: 4MG DAILY EXCEPT 2MG ON M AND W (PO) ~ 8 YEARS
     Route: 048
  2. ENOXAPARIN SODIUM [Suspect]
     Indication: POSTOPERATIVE CARE
     Dosage: DOSE/FREQUENCY UNKNOWN SINCE APPROX 4/5/06
     Dates: start: 20060405
  3. ENOXAPARIN SODIUM [Suspect]
     Indication: PREOPERATIVE CARE
     Dosage: DOSE/FREQUENCY UNKNOWN SINCE APPROX 4/5/06
     Dates: start: 20060405
  4. OMEPRAZOLE [Concomitant]
  5. FINASTERIDE [Concomitant]
  6. FELODIPINE SA [Concomitant]
  7. LISINOPRIL [Concomitant]

REACTIONS (3)
  - HAEMORRHOIDS [None]
  - LOWER GASTROINTESTINAL HAEMORRHAGE [None]
  - POST PROCEDURAL COMPLICATION [None]
